FAERS Safety Report 5511054-3 (Version None)
Quarter: 2007Q4

REPORT INFORMATION
  Report Type: 
  Country: None (occurrence: None)
  Receive Date: 20071109
  Receipt Date: 20071030
  Transmission Date: 20080405
  Serious: Yes (Hospitalization, Other)
  Sender: FDA-Public Use
  Company Number: PHEH2007US12166

PATIENT
  Age: 66 Year
  Sex: Male
  Weight: 94.7 kg

DRUGS (15)
  1. GLEEVEC [Suspect]
     Indication: ADENOID CYSTIC CARCINOMA
     Dosage: 400 MG, QD
     Route: 048
     Dates: start: 20070301
  2. GLEEVEC [Suspect]
     Dosage: 200 MG, QD
     Route: 048
     Dates: start: 20060711
  3. GLEEVEC [Suspect]
     Dosage: UNK, NO TREATMENT
     Dates: end: 20061108
  4. GLEEVEC [Suspect]
     Dosage: 100 MG, TID
     Route: 048
     Dates: start: 20061108, end: 20070301
  5. GLEEVEC [Suspect]
     Dosage: UNK, NO TREATMENT
     Dates: start: 20070801, end: 20070901
  6. GLEEVEC [Suspect]
     Dosage: 200 MG, QD
     Route: 048
     Dates: start: 20070901
  7. FLOMAX [Concomitant]
     Indication: BENIGN PROSTATIC HYPERPLASIA
     Dosage: 0.4 MG, QD
  8. VERAPAMIL [Concomitant]
     Dosage: 240 MG, QD
     Route: 048
  9. BENICAR [Concomitant]
  10. VIAGRA [Concomitant]
  11. LORAZEPAM [Concomitant]
     Dosage: 0.5 MG, PRN
  12. COLACE [Concomitant]
     Dosage: 100 MG, PRN
  13. LISINOPRIL [Concomitant]
  14. HERBALS NOS W/VITAMINS NOS [Concomitant]
  15. ASPIRIN [Concomitant]

REACTIONS (30)
  - ARRHYTHMIA [None]
  - ATRIAL FIBRILLATION [None]
  - BIOPSY INTESTINE ABNORMAL [None]
  - BLOOD BICARBONATE INCREASED [None]
  - BLOOD BILIRUBIN INCREASED [None]
  - BLOOD CREATININE INCREASED [None]
  - BLOOD PHOSPHORUS DECREASED [None]
  - BLOOD THYROID STIMULATING HORMONE DECREASED [None]
  - BRUNNER'S GLAND HYPERPLASIA [None]
  - CONSTIPATION [None]
  - DEHYDRATION [None]
  - DUODENAL POLYP [None]
  - ENDOSCOPY UPPER GASTROINTESTINAL TRACT ABNORMAL [None]
  - FOOD INTOLERANCE [None]
  - GASTROINTESTINAL DISORDER [None]
  - GASTROOESOPHAGEAL REFLUX DISEASE [None]
  - GLAUCOMA [None]
  - HAEMATOCRIT DECREASED [None]
  - HEART RATE IRREGULAR [None]
  - HIATUS HERNIA [None]
  - HIP FRACTURE [None]
  - HYPERTENSION [None]
  - NAUSEA [None]
  - NEOPLASM PROGRESSION [None]
  - PRESYNCOPE [None]
  - ROAD TRAFFIC ACCIDENT [None]
  - SUBMANDIBULAR MASS [None]
  - SURGERY [None]
  - VOMITING [None]
  - WEIGHT DECREASED [None]
